FAERS Safety Report 5447646-X (Version None)
Quarter: 2007Q3

REPORT INFORMATION
  Report Type: 
  Country: None (occurrence: None)
  Receive Date: 20070910
  Receipt Date: 20070827
  Transmission Date: 20080115
  Serious: Yes (Life-Threatening)
  Sender: FDA-Public Use
  Company Number: JP-ROCHE-489990

PATIENT
  Age: 10 Year
  Sex: Male
  Weight: 33 kg

DRUGS (4)
  1. TAMIFLU [Suspect]
     Dosage: DRUG REPORTED AS TAMIFLU DRY SYRUP 3%. FORM: DRY SYRUP. PATIENT TOOK IT ONLY ONCE.
     Route: 048
     Dates: start: 20070320, end: 20070320
  2. ASVERIN [Concomitant]
     Route: 048
     Dates: start: 20070320
  3. MUCODYNE [Concomitant]
     Route: 048
     Dates: start: 20070320
  4. NIPOLAZIN [Concomitant]
     Route: 048
     Dates: start: 20070320

REACTIONS (1)
  - ABNORMAL BEHAVIOUR [None]
